FAERS Safety Report 9685278 (Version 1)
Quarter: 2013Q4

REPORT INFORMATION
  Report Type: Spontaneous
  Country: US (occurrence: US)
  Receive Date: 20131113
  Receipt Date: 20131113
  Transmission Date: 20140711
  Serious: Yes (Hospitalization)
  Sender: FDA-Public Use
  Company Number: US-TARO PHARMACEUTICALS U.S.A., INC-2013SUN04971

PATIENT
  Age: 31 Year
  Sex: Female

DRUGS (8)
  1. HALOPERIDOL [Suspect]
     Indication: AGITATION
     Dosage: 5 MG, PRN
     Route: 042
  2. HALOPERIDOL [Suspect]
     Dosage: 4 MG, PRN
     Route: 042
  3. METHADONE [Suspect]
     Indication: BACK PAIN
     Dosage: 30 MG, UNK
     Route: 042
  4. METHADONE [Suspect]
     Indication: ABDOMINAL PAIN
     Dosage: 5 MG, UNK
     Route: 048
  5. METHADONE [Suspect]
     Dosage: UNK
  6. HYDROMORPHONE [Concomitant]
     Dosage: UNK, PRN
  7. ONDANSETRON HYDROCHLORIDE [Suspect]
     Indication: NAUSEA
     Dosage: UNK UNK, PRN
     Route: 065
  8. OLANZAPINE [Suspect]
     Indication: NAUSEA
     Route: 048

REACTIONS (1)
  - Torsade de pointes [Unknown]
